FAERS Safety Report 11121290 (Version 1)
Quarter: 2015Q2

REPORT INFORMATION
  Report Type: Report from Study
  Country: DE (occurrence: DE)
  Receive Date: 20150519
  Receipt Date: 20150519
  Transmission Date: 20150821
  Serious: Yes (Other)
  Sender: FDA-Public Use
  Company Number: DE-ABBVIE-15P-062-1392757-00

PATIENT
  Age: 50 Year
  Sex: Male

DRUGS (2)
  1. DUODOPA [Suspect]
     Active Substance: CARBIDOPA\LEVODOPA
     Indication: PARKINSON^S DISEASE
     Dosage: MD 2.5ML; CRD 1.8ML/H; CRN 1.0ML/H; ED 1.8ML
     Route: 050
     Dates: start: 20140617, end: 201501
  2. DUODOPA [Suspect]
     Active Substance: CARBIDOPA\LEVODOPA
     Route: 050
     Dates: start: 201501

REACTIONS (3)
  - Fall [Recovered/Resolved]
  - Patella fracture [Not Recovered/Not Resolved]
  - Akinesia [Not Recovered/Not Resolved]

NARRATIVE: CASE EVENT DATE: 20150511
